FAERS Safety Report 6934349-5 (Version None)
Quarter: 2010Q3

REPORT INFORMATION
  Report Type: 
  Country: None (occurrence: None)
  Receive Date: 20100820
  Receipt Date: 20100816
  Transmission Date: 20110219
  Serious: Yes (Other)
  Sender: FDA-Public Use
  Company Number: A0876116A

PATIENT
  Age: 56 Year
  Sex: Male

DRUGS (7)
  1. ADVAIR DISKUS 100/50 [Suspect]
     Indication: CHRONIC OBSTRUCTIVE PULMONARY DISEASE
     Dosage: 1PUFF TWICE PER DAY
     Route: 055
     Dates: start: 20100814, end: 20100814
  2. KLONOPIN [Concomitant]
  3. ATENOLOL [Concomitant]
  4. GABAPENTIN [Concomitant]
  5. VENLAFAXINE [Concomitant]
  6. ASPIRIN [Concomitant]
  7. QUETIAPINE FUMARATE [Concomitant]

REACTIONS (3)
  - CONVULSION [None]
  - FATIGUE [None]
  - PAIN [None]
